FAERS Safety Report 15631628 (Version 1)
Quarter: 2018Q4

REPORT INFORMATION
  Report Type: Spontaneous
  Country: US (occurrence: US)
  Receive Date: 20181113
  Receipt Date: 20181113
  Transmission Date: 20190205
  Serious: Yes (Other)
  Sender: FDA-Public Use
  Company Number: None

PATIENT
  Age: 46 Year
  Sex: Female
  Weight: 57.15 kg

DRUGS (3)
  1. ONDANSETRON [Suspect]
     Active Substance: ONDANSETRON
     Indication: NAUSEA
     Route: 048
     Dates: start: 20181108, end: 20181112
  2. IBUPROFEN. [Concomitant]
     Active Substance: IBUPROFEN
  3. NORCO [Concomitant]
     Active Substance: ACETAMINOPHEN\HYDROCODONE BITARTRATE

REACTIONS (6)
  - Agitation [None]
  - Headache [None]
  - Anger [None]
  - Pyrexia [None]
  - Anxiety [None]
  - Constipation [None]

NARRATIVE: CASE EVENT DATE: 20181112
